FAERS Safety Report 8543205-0 (Version None)
Quarter: 2012Q3

REPORT INFORMATION
  Report Type: 
  Country: None (occurrence: None)
  Receive Date: 20120727
  Receipt Date: 20120718
  Transmission Date: 20120928
  Serious: Yes (Other)
  Sender: FDA-Public Use
  Company Number: NO-JNJFOC-20120710334

PATIENT
  Age: 24 Year
  Sex: Male

DRUGS (8)
  1. BLEOMYCIN SULFATE [Suspect]
     Indication: HODGKIN'S DISEASE
     Dosage: ON DAY 8 EVERY 22 DAYS
     Route: 042
  2. SULFAMETHOXAZOLE AND TRIMETHOPRIM [Concomitant]
     Indication: ANTIFUNGAL PROPHYLAXIS
     Route: 065
  3. PREDNISOLONE [Suspect]
     Indication: HODGKIN'S DISEASE
     Dosage: ON DAY 1-14 EVERY 22 DAYS CYCLE
     Route: 048
  4. DOXORUBICIN HYDROCHLORIDE [Suspect]
     Indication: HODGKIN'S DISEASE
     Dosage: 25 (STANDARD) OR 35 (ESCALATED) MG/M2 ON DAY 1 EVERY 22 DAYS
     Route: 042
  5. ETOPOSIDE [Suspect]
     Indication: HODGKIN'S DISEASE
     Dosage: 100 (STANDARD) OR 200 (ESCALATED) MG/M2 ON DAY 1 AND 3 OF EVERY 22 DAYS CYCLE
     Route: 042
  6. CYCLOPHOSPHAMIDE [Suspect]
     Indication: HODGKIN'S DISEASE
     Dosage: 650 (STANDARD) OR 1250 (ESCALATED) MG/M2 ON DAY 1 EVERY 22 DAYS.
     Route: 042
  7. VINCRISTINE [Suspect]
     Indication: HODGKIN'S DISEASE
     Dosage: ON DAY 8 EVERY 22 DAY CYCLE
     Route: 042
  8. PROCARBAZINE HYDROCHLORIDE [Suspect]
     Indication: HODGKIN'S DISEASE
     Dosage: ON DAY 1-7 EVERY 22 DAYS
     Route: 048

REACTIONS (1)
  - OSTEONECROSIS [None]
